FAERS Safety Report 7798055-X (Version None)
Quarter: 2011Q4

REPORT INFORMATION
  Report Type: 
  Country: None (occurrence: None)
  Receive Date: 20111005
  Receipt Date: 20110930
  Transmission Date: 20120403
  Serious: Yes (Other)
  Sender: FDA-Public Use
  Company Number: CHPA2011US13426

PATIENT
  Age: 74 Year
  Sex: Male

DRUGS (2)
  1. ASPIRIN [Concomitant]
     Dosage: 1 DF, QD
  2. VOLTAREN [Suspect]
     Indication: ARTHRITIS
     Dosage: 1/4 INCH ON FINGER, QHS
     Route: 061
     Dates: start: 20110701, end: 20110928

REACTIONS (5)
  - DIZZINESS [None]
  - WRONG TECHNIQUE IN DRUG USAGE PROCESS [None]
  - LOSS OF CONSCIOUSNESS [None]
  - FALL [None]
  - DRUG ADMINISTERED AT INAPPROPRIATE SITE [None]
